FAERS Safety Report 23854373 (Version 1)
Quarter: 2024Q2

REPORT INFORMATION
  Report Type: Spontaneous
  Country: GB (occurrence: GB)
  Receive Date: 20240514
  Receipt Date: 20240514
  Transmission Date: 20240716
  Serious: No
  Sender: FDA-Public Use
  Company Number: GB-WT-2024-GB-042565

PATIENT

DRUGS (1)
  1. AVODART [Suspect]
     Active Substance: DUTASTERIDE
     Indication: Alopecia
     Dosage: 0.5 MG, QOD
     Route: 065

REACTIONS (2)
  - Skin odour abnormal [Unknown]
  - Product use in unapproved indication [Unknown]
